FAERS Safety Report 8274235-4 (Version None)
Quarter: 2012Q2

REPORT INFORMATION
  Report Type: 
  Country: None (occurrence: None)
  Receive Date: 20120411
  Receipt Date: 20120409
  Transmission Date: 20120825
  Serious: Yes (Other)
  Sender: FDA-Public Use
  Company Number: JP-BAYER-2011-035634

PATIENT
  Age: 78 Year
  Sex: Female
  Weight: 57 kg

DRUGS (15)
  1. SORAFENIB [Suspect]
     Indication: HEPATIC NEOPLASM MALIGNANT
     Dosage: 400 MG, BID
     Route: 048
     Dates: start: 20101214, end: 20110119
  2. RINLAXER [Concomitant]
     Dosage: DAILY DOSE 750 MG
     Route: 048
     Dates: start: 20070312
  3. ATELEC [Concomitant]
     Dosage: DAILY DOSE 10 MG
     Route: 048
     Dates: start: 20070312
  4. TRAZODONE HYDROCHLORIDE [Concomitant]
     Dosage: DAILY DOSE 25 MG
     Route: 048
     Dates: start: 20070312
  5. ALDACTONE [Concomitant]
     Dosage: DAILY DOSE 25 MG
     Route: 048
     Dates: start: 20070312
  6. ALLOPURINOL [Concomitant]
     Dosage: DAILY DOSE 100 MG
     Route: 048
     Dates: start: 20070312
  7. OLMESARTAN MEDOXOMIL [Concomitant]
     Dosage: DAILY DOSE 20 MG
     Route: 048
     Dates: start: 20070312
  8. RABEPRAZOLE SODIUM [Concomitant]
     Dosage: DAILY DOSE 10 MG
     Route: 048
     Dates: start: 20070312
  9. ALENDRONATE SODIUM [Concomitant]
     Dosage: DAILY DOSE 5 MG
     Route: 048
     Dates: start: 20070312
  10. URALYT [Concomitant]
     Dosage: DAILY DOSE 3 G
     Route: 048
     Dates: start: 20070313
  11. ROCALTROL [Concomitant]
     Dosage: DAILY DOSE .25 MG
     Route: 065
     Dates: start: 20070312
  12. DEPAS [Concomitant]
     Dosage: DAILY DOSE 1 MG
     Route: 048
     Dates: start: 20070312
  13. LASIX [Concomitant]
     Dosage: DAILY DOSE 20 MG
     Route: 065
     Dates: start: 20070312
  14. TRICHLORMETHIAZIDE [Concomitant]
     Dosage: DAILY DOSE 2 MG
     Route: 048
     Dates: start: 20070312
  15. GOODMIN [Concomitant]
     Dosage: DAILY DOSE .25 MG
     Route: 048
     Dates: start: 20070312

REACTIONS (3)
  - DECREASED APPETITE [None]
  - HEPATIC ENCEPHALOPATHY [None]
  - MALAISE [None]
